FAERS Safety Report 19297546 (Version 3)
Quarter: 2021Q3

REPORT INFORMATION
  Report Type: Spontaneous
  Country: HR (occurrence: HR)
  Receive Date: 20210524
  Receipt Date: 20210805
  Transmission Date: 20211014
  Serious: Yes (Other)
  Sender: FDA-Public Use
  Company Number: HR-CELLTRION INC.-2021HR006896

PATIENT

DRUGS (11)
  1. BENDAMUSTINE [Concomitant]
     Active Substance: BENDAMUSTINE
     Dosage: BETWEEN THE 3 AND 4 TREATMENT CYCLEUNK
     Route: 065
  2. BENDAMUSTINE [Concomitant]
     Active Substance: BENDAMUSTINE
     Dosage: BETWEEN THE 3 AND 4 TREATMENT CYCLE AT STANDARD DOSES
     Route: 065
  3. BENDAMUSTINE [Concomitant]
     Active Substance: BENDAMUSTINE
     Dosage: DOSE REDUCED BY 30 PERCENT
     Route: 065
  4. RITUXIMAB (UNKNOWN) [Suspect]
     Active Substance: RITUXIMAB
     Dosage: THIRD CYCLE
  5. RITUXIMAB (UNKNOWN) [Suspect]
     Active Substance: RITUXIMAB
     Dosage: FOURTH CYCLE
  6. BENDAMUSTINE [Concomitant]
     Active Substance: BENDAMUSTINE
     Dosage: LOWERED TO 30%
  7. RITUXIMAB (UNKNOWN) [Suspect]
     Active Substance: RITUXIMAB
     Dosage: FIFTH CYCLE
  8. RITUXIMAB (UNKNOWN) [Suspect]
     Active Substance: RITUXIMAB
     Dosage: SECOND CYCLE
  9. RITUXIMAB (UNKNOWN) [Suspect]
     Active Substance: RITUXIMAB
     Indication: FOLLICULAR LYMPHOMA
     Dosage: FIRST CYCLE
  10. RITUXIMAB (UNKNOWN) [Suspect]
     Active Substance: RITUXIMAB
     Dosage: BETWEEN THE 3 AND 4 TREATMENT CYCLE
     Route: 065
  11. BENDAMUSTINE [Concomitant]
     Active Substance: BENDAMUSTINE
     Indication: FOLLICULAR LYMPHOMA
     Dosage: B?R APPLIED AT STANDARD DOSES

REACTIONS (7)
  - Taste disorder [Unknown]
  - Axonal neuropathy [Unknown]
  - Neutropenia [Unknown]
  - Visual impairment [Unknown]
  - Neuropathic muscular atrophy [Unknown]
  - Follicular lymphoma [Unknown]
  - Disease recurrence [Unknown]
